FAERS Safety Report 9979323 (Version 2)
Quarter: 2014Q1

REPORT INFORMATION
  Report Type: Report from Study
  Country: US (occurrence: US)
  Receive Date: 20140306
  Receipt Date: 20140306
  Transmission Date: 20141002
  Serious: No
  Sender: FDA-Public Use
  Company Number: US-ABBVIE-09P-163-0598419-00

PATIENT
  Age: 62 Year
  Sex: Female
  Weight: 58.57 kg

DRUGS (8)
  1. HUMIRA 40 MG/ 0.8 ML PRE-FILLED SYRINGE [Suspect]
     Indication: RHEUMATOID ARTHRITIS
     Dates: start: 20030716
  2. HUMIRA [Suspect]
     Indication: RHEUMATOID ARTHRITIS
  3. HUMIRA [Suspect]
     Dates: end: 201305
  4. HUMIRA [Suspect]
     Dates: start: 20131010
  5. HUMIRA [Suspect]
     Dates: start: 20131114
  6. METHOTREXATE [Concomitant]
     Indication: PRODUCT USED FOR UNKNOWN INDICATION
  7. MELOXICAM [Concomitant]
     Indication: PRODUCT USED FOR UNKNOWN INDICATION
  8. DILTIAZEM CD [Concomitant]
     Indication: HYPERTENSION

REACTIONS (24)
  - Decreased appetite [Recovering/Resolving]
  - Urinary tract infection [Recovered/Resolved]
  - Cystitis [Recovered/Resolved]
  - Rheumatoid arthritis [Recovered/Resolved]
  - Diarrhoea [Recovering/Resolving]
  - Abdominal pain [Recovering/Resolving]
  - Abdominal pain [Recovering/Resolving]
  - Gastrointestinal disorder [Recovering/Resolving]
  - Abdominal adhesions [Recovering/Resolving]
  - Malabsorption [Recovering/Resolving]
  - Irritable bowel syndrome [Recovering/Resolving]
  - Urinary tract infection [Recovered/Resolved]
  - Weight decreased [Recovering/Resolving]
  - Cystitis [Recovered/Resolved]
  - Arthralgia [Recovered/Resolved]
  - Fatigue [Recovering/Resolving]
  - Feeling abnormal [Recovering/Resolving]
  - Hypotonia [Recovering/Resolving]
  - Activities of daily living impaired [Recovering/Resolving]
  - Cachexia [Recovering/Resolving]
  - Contusion [Recovering/Resolving]
  - Rash macular [Recovering/Resolving]
  - Alopecia [Recovering/Resolving]
  - Hair colour changes [Recovering/Resolving]
